FAERS Safety Report 9564621 (Version 7)
Quarter: 2019Q1

REPORT INFORMATION
  Report Type: Spontaneous
  Country: US (occurrence: US)
  Receive Date: 20130930
  Receipt Date: 20190307
  Transmission Date: 20190418
  Serious: No
  Sender: FDA-Public Use
  Company Number: US-PFIZER INC-2013276771

PATIENT
  Age: 56 Year
  Sex: Female
  Weight: 86 kg

DRUGS (30)
  1. BIESTROGEN [Concomitant]
     Dosage: 1.25 MG, UNK
     Route: 060
  2. ESTRIOL [Concomitant]
     Active Substance: ESTRIOL
     Dosage: 1 MG, UNK
  3. MAGNESIUM [Concomitant]
     Active Substance: MAGNESIUM
     Dosage: 30 MG, (2 TO 3 TABLETS AT NIGHT)
  4. PROZAC [Concomitant]
     Active Substance: FLUOXETINE HYDROCHLORIDE
     Dosage: 40 MG, 1X/DAY
     Route: 048
  5. MAGONATE [Concomitant]
     Active Substance: MAGNESIUM CARBONATE
     Dosage: UNK
  6. LYRICA [Suspect]
     Active Substance: PREGABALIN
     Dosage: 300 MG, 1X/DAY (TAKE 1 CAPSULE (300 MG) BY MOUTH 1 TIME PER DAY)
     Route: 048
     Dates: start: 20190226
  7. BACLOFEN. [Concomitant]
     Active Substance: BACLOFEN
     Indication: MUSCLE SPASMS
     Dosage: 10 MG, AS NEEDED (20 MG TAKE 1/2 TABLET (10 MG) EVERY DAY AS NEEDED)
     Route: 048
  8. CALCIUM CARBONATE;VITAMIN D [Concomitant]
     Dosage: 2400 MG, 1X/DAY (1200 MG TWO CHEWS)
     Route: 048
  9. CRANBERRY. [Concomitant]
     Active Substance: CRANBERRY
     Dosage: 3000 MG, DAILY
  10. VITAMIN C [Concomitant]
     Active Substance: ASCORBIC ACID
     Dosage: 1000 MG, DAILY
  11. LYRICA [Suspect]
     Active Substance: PREGABALIN
     Dosage: 300 MG, DAILY (ONE CAPSULE ONCE DAILY)
     Route: 048
  12. OMEGA 3-6-9 [Concomitant]
     Active Substance: FISH OIL
     Dosage: 1200 MG, DAILY
  13. OXYBUTYNIN CHLORIDE. [Concomitant]
     Active Substance: OXYBUTYNIN CHLORIDE
     Dosage: 5 MG, 1X/DAY (AT NIGHT)
     Route: 048
  14. CALCIUM [Concomitant]
     Active Substance: CALCIUM
     Dosage: 1000 IU, UNK
  15. LYRICA [Suspect]
     Active Substance: PREGABALIN
     Indication: NEURALGIA
     Dosage: 150 MG, 1X/DAY (ONE CAPSULE DAILY)
     Route: 048
  16. LYRICA [Suspect]
     Active Substance: PREGABALIN
     Dosage: 300 MG, 1X/DAY (ONE CAPSULE ONCE DAILY)
     Route: 048
  17. ACIDOPHILUS [Concomitant]
     Active Substance: LACTOBACILLUS ACIDOPHILUS
     Dosage: 1 DF, DAILY
     Route: 048
  18. MIRALAX [Concomitant]
     Active Substance: POLYETHYLENE GLYCOL 3350
     Dosage: 17 G, 1X/DAY
     Route: 048
  19. DITROPAN [Concomitant]
     Active Substance: OXYBUTYNIN CHLORIDE
     Dosage: UNK
  20. LYRICA [Suspect]
     Active Substance: PREGABALIN
     Dosage: 300 MG, 1X/DAY (1 CAPSULE, 300 MG, 1 TIMES PER DAY)
     Route: 048
     Dates: start: 20170829
  21. ADDERALL XR [Concomitant]
     Active Substance: AMPHETAMINE ASPARTATE\AMPHETAMINE SULFATE\DEXTROAMPHETAMINE SACCHARATE\DEXTROAMPHETAMINE SULFATE
     Dosage: 30 MG, DAILY (IN THE MORNING UPON AWAKENING)
     Route: 048
  22. TYLENOL EXTRA STRENGTH [Concomitant]
     Active Substance: ACETAMINOPHEN
     Dosage: 500 MG, AS NEEDED (4X/DAY, EVERY 6 HOURS AS NEEDED)
     Route: 048
  23. VITAMIN D [ERGOCALCIFEROL] [Concomitant]
     Active Substance: ERGOCALCIFEROL
     Dosage: UNK
  24. MELATONIN [Concomitant]
     Active Substance: MELATONIN
     Dosage: UNK
  25. LYRICA [Suspect]
     Active Substance: PREGABALIN
     Indication: NEUROPATHY PERIPHERAL
     Dosage: 150 MG, 2X/DAY
     Route: 048
     Dates: start: 2006
  26. LYRICA [Suspect]
     Active Substance: PREGABALIN
     Indication: POLYNEUROPATHY
     Dosage: 500 MG, UNK
     Route: 048
     Dates: start: 2009
  27. ALEVE [Concomitant]
     Active Substance: NAPROXEN SODIUM
     Dosage: 220 MG, 1X/DAY (EVERY EVENING)
     Route: 048
  28. PRENATAL VITAMINS [ASCORBIC ACID;BIOTIN;MINERALS NOS;NICOTINIC ACID;RE [Concomitant]
     Dosage: 1 DF, DAILY
     Route: 048
  29. PROGESTERON [Concomitant]
     Active Substance: PROGESTERONE
     Dosage: 200 MG, 2X/DAY
     Route: 048
  30. TURMERIC CURCUMIN [Concomitant]
     Active Substance: HERBALS\TURMERIC
     Dosage: UNK

REACTIONS (6)
  - Somnolence [Not Recovered/Not Resolved]
  - Pain [Not Recovered/Not Resolved]
  - Abdominal distension [Recovered/Resolved]
  - Product use issue [Unknown]
  - Increased appetite [Recovered/Resolved]
  - Weight increased [Unknown]

NARRATIVE: CASE EVENT DATE: 2006
